FAERS Safety Report 26149903 (Version 1)
Quarter: 2025Q4

REPORT INFORMATION
  Report Type: Spontaneous
  Country: UA (occurrence: UA)
  Receive Date: 20251212
  Receipt Date: 20251212
  Transmission Date: 20260118
  Serious: Yes (Death, Other)
  Sender: JOHNSON AND JOHNSON
  Company Number: UA-BAYER-2025A162585

PATIENT
  Age: 16 Year
  Sex: Female

DRUGS (4)
  1. RIVAROXABAN [Suspect]
     Active Substance: RIVAROXABAN
     Indication: Product used for unknown indication
  2. ASPIRIN [Suspect]
     Active Substance: ASPIRIN
     Indication: Product used for unknown indication
  3. HEPARIN [Suspect]
     Active Substance: HEPARIN SODIUM
     Indication: Product used for unknown indication
  4. WARFARIN [Suspect]
     Active Substance: WARFARIN
     Indication: Product used for unknown indication

REACTIONS (19)
  - Haemorrhagic diathesis [Fatal]
  - Multiple organ dysfunction syndrome [Fatal]
  - Shock [Fatal]
  - Respiratory failure [Fatal]
  - Skin haemorrhage [Unknown]
  - Gastric haemorrhage [Unknown]
  - Haemorrhagic infarction [Unknown]
  - Acute kidney injury [Unknown]
  - Pancytopenia [Unknown]
  - Procalcitonin increased [Unknown]
  - Metabolic acidosis [Unknown]
  - Hyperkalaemia [Unknown]
  - Hyperglycaemia [Unknown]
  - Disseminated intravascular coagulation [Unknown]
  - Intestinal haemorrhage [Unknown]
  - Pneumonia [Unknown]
  - Epistaxis [Unknown]
  - Product prescribing issue [Unknown]
  - Product use issue [Unknown]
